FAERS Safety Report 9123728 (Version 1)
Quarter: 2013Q1

REPORT INFORMATION
  Report Type: Spontaneous
  Country: US (occurrence: US)
  Receive Date: 20130227
  Receipt Date: 20130227
  Transmission Date: 20140127
  Serious: Yes (Other)
  Sender: FDA-Public Use
  Company Number: US-PFIZER INC-2013069474

PATIENT
  Age: 13 Month
  Sex: Male

DRUGS (5)
  1. ETHOSUXIMIDE [Suspect]
     Indication: MYOCLONIC EPILEPSY
     Dosage: 60 MG/KG/DAY, UNK
  2. PHENOBARBITAL [Concomitant]
     Indication: MYOCLONIC EPILEPSY
     Dosage: 8 MG/KG/DAY, UNK
  3. VALPROIC ACID [Concomitant]
     Indication: MYOCLONIC EPILEPSY
     Dosage: 62 MG/KG/DAY, UNK
  4. VALPROIC ACID [Concomitant]
     Dosage: 30 MG/KG/DAY, UNK
  5. ACETAZOLAMIDE [Concomitant]
     Indication: MYOCLONIC EPILEPSY
     Dosage: 25 MG/KG/DAY, UNK

REACTIONS (1)
  - Hepatic enzyme increased [Recovered/Resolved]
